FAERS Safety Report 8660253 (Version 3)
Quarter: 2012Q4

REPORT INFORMATION
  Report Type: 
  Country: US (occurrence: US)
  Receive Date: 20120711
  Receipt Date: 20120905
  Transmission Date: 20130627
  Serious: Yes (Hospitalization)
  Sender: FDA-Public Use
  Company Number: US-GLAXOSMITHKLINE-A0983408A

PATIENT
  Age: 64 Year
  Sex: Female

DRUGS (5)
  1. VENTOLIN [Suspect]
     Indication: ASTHMA
     Dosage: 2PUFF As required
     Route: 055
     Dates: start: 20120502
  2. VITAMIN D [Concomitant]
  3. CHEMOTHERAPY [Concomitant]
  4. PRILOSEC [Concomitant]
  5. SYMBICORT [Concomitant]

REACTIONS (4)
  - Aphonia [Recovering/Resolving]
  - Dyspnoea [Recovering/Resolving]
  - Drug administration error [Recovering/Resolving]
  - Product quality issue [Unknown]
